FAERS Safety Report 25514720 (Version 3)
Quarter: 2025Q3

REPORT INFORMATION
  Report Type: Report from Study
  Country: US (occurrence: US)
  Receive Date: 20250703
  Receipt Date: 20250916
  Transmission Date: 20251021
  Serious: Yes (Hospitalization)
  Sender: TG THERAPEUTICS
  Company Number: US-TG THERAPEUTICS INC.-TGT005459

PATIENT

DRUGS (6)
  1. UBLITUXIMAB [Suspect]
     Active Substance: UBLITUXIMAB
     Indication: Multiple sclerosis
     Route: 042
     Dates: start: 20240308, end: 20240308
  2. UBLITUXIMAB [Suspect]
     Active Substance: UBLITUXIMAB
     Route: 042
     Dates: start: 20250207, end: 20250207
  3. LISINOPRIL [Concomitant]
     Active Substance: LISINOPRIL
     Indication: Hypertension
     Dosage: 20 MILLIGRAM, QD
     Route: 048
  4. METOPROLOL [Concomitant]
     Active Substance: METOPROLOL
     Indication: Coronary artery disease
     Dosage: 100 MILLIGRAM, BID
     Route: 048
  5. OZEMPIC [Concomitant]
     Active Substance: SEMAGLUTIDE
     Indication: Obesity
     Route: 058
  6. OZEMPIC [Concomitant]
     Active Substance: SEMAGLUTIDE
     Indication: Diabetes mellitus

REACTIONS (3)
  - Fungal foot infection [Unknown]
  - Cellulitis [Recovering/Resolving]
  - Hyperuricaemia [Recovering/Resolving]

NARRATIVE: CASE EVENT DATE: 20250101
